FAERS Safety Report 4663554-6 (Version None)
Quarter: 2005Q2

REPORT INFORMATION
  Report Type: 
  Country: None (occurrence: None)
  Receive Date: 20050517
  Receipt Date: 20050512
  Transmission Date: 20051028
  Serious: Yes (Hospitalization)
  Sender: FDA-Public Use
  Company Number: FR-GLAXOSMITHKLINE-B0381171A

PATIENT
  Age: 60 Year
  Sex: Female

DRUGS (5)
  1. ZINNAT [Suspect]
     Indication: NASOPHARYNGITIS
     Dosage: 250MG TWICE PER DAY
     Route: 048
     Dates: start: 20050428, end: 20050502
  2. BIOCALYPTOL [Concomitant]
     Indication: RHINOLARYNGITIS
     Route: 065
     Dates: start: 20050428
  3. PARACETAMOL [Concomitant]
     Route: 065
     Dates: start: 20050428
  4. LEVOTHYROX [Concomitant]
     Route: 048
  5. JOSACINE [Concomitant]
     Indication: PNEUMONIA
     Route: 048
     Dates: start: 20050511

REACTIONS (7)
  - PNEUMONIA [None]
  - PRURITUS [None]
  - PRURITUS GENERALISED [None]
  - PYREXIA [None]
  - SKIN REACTION [None]
  - TOXIC SKIN ERUPTION [None]
  - URTICARIA GENERALISED [None]
